FAERS Safety Report 6339803-5 (Version None)
Quarter: 2009Q3

REPORT INFORMATION
  Report Type: 
  Country: None (occurrence: None)
  Receive Date: 20090903
  Receipt Date: 20090827
  Transmission Date: 20100115
  Serious: Yes (Hospitalization)
  Sender: FDA-Public Use
  Company Number: PHHY2009JP36697

PATIENT
  Age: 80 Year
  Sex: Female

DRUGS (4)
  1. DIOVAN [Suspect]
     Indication: HYPERTENSION
     Dosage: 40 MG DAILY
     Route: 048
     Dates: start: 20081009
  2. KETOPROFEN [Concomitant]
  3. AMLODIPINE [Concomitant]
     Dosage: UNK
     Route: 048
     Dates: start: 20081009
  4. BUFFERIN [Concomitant]
     Dosage: UNK
     Route: 048
     Dates: start: 20081009

REACTIONS (3)
  - ACUTE MYOCARDIAL INFARCTION [None]
  - CHEST PAIN [None]
  - STENT PLACEMENT [None]
